FAERS Safety Report 10587555 (Version 1)
Quarter: 2014Q4

REPORT INFORMATION
  Report Type: Spontaneous
  Country: US (occurrence: US)
  Receive Date: 20141117
  Receipt Date: 20141117
  Transmission Date: 20150529
  Serious: Yes (Other)
  Sender: FDA-Public Use
  Company Number: US-US-EMD SERONO, INC.-7333858

PATIENT
  Sex: Female

DRUGS (1)
  1. REBIF [Suspect]
     Active Substance: INTERFERON BETA-1A
     Indication: PRODUCT USED FOR UNKNOWN INDICATION

REACTIONS (5)
  - Uterine disorder [Unknown]
  - Hypoaesthesia [Not Recovered/Not Resolved]
  - Influenza like illness [Unknown]
  - Limb discomfort [Not Recovered/Not Resolved]
  - Alopecia [Unknown]
